FAERS Safety Report 13593299 (Version 1)
Quarter: 2017Q2

REPORT INFORMATION
  Report Type: Spontaneous
  Country: US (occurrence: US)
  Receive Date: 20170530
  Receipt Date: 20170530
  Transmission Date: 20170830
  Serious: Yes (Hospitalization, Other)
  Sender: FDA-Public Use
  Company Number: US-HERITAGE PHARMACEUTICALS-2017HTG00128

PATIENT
  Age: 18 Year
  Sex: Female

DRUGS (1)
  1. VERAPAMIL HYDROCHLORIDE. [Suspect]
     Active Substance: VERAPAMIL HYDROCHLORIDE
     Dosage: 1800 MG, ONCE
     Route: 048

REACTIONS (5)
  - Rhythm idioventricular [Recovered/Resolved]
  - Toxicity to various agents [Recovered/Resolved]
  - Nodal rhythm [Recovered/Resolved]
  - Atrioventricular block complete [Recovered/Resolved]
  - Overdose [Recovered/Resolved]
